FAERS Safety Report 13616267 (Version 2)
Quarter: 2017Q3

REPORT INFORMATION
  Report Type: Spontaneous
  Country: AR (occurrence: AR)
  Receive Date: 20170606
  Receipt Date: 20170711
  Transmission Date: 20171127
  Serious: Yes (Hospitalization, Other)
  Sender: FDA-Public Use
  Company Number: AR-AEGERION PHARMACEUTICAL, INC-AEGR003172

PATIENT

DRUGS (1)
  1. MYALEPT [Suspect]
     Active Substance: METRELEPTIN
     Indication: CONGENITAL GENERALISED LIPODYSTROPHY
     Dosage: 1 ML, UNK
     Route: 058
     Dates: start: 201612

REACTIONS (5)
  - Gastrointestinal disorder [Unknown]
  - Appendicitis [Unknown]
  - Liver disorder [Unknown]
  - Acute abdomen [Unknown]
  - Lymphadenopathy [Unknown]
